FAERS Safety Report 25538221 (Version 1)
Quarter: 2025Q3

REPORT INFORMATION
  Report Type: Report from Study
  Country: US (occurrence: US)
  Receive Date: 20250710
  Receipt Date: 20250710
  Transmission Date: 20251020
  Serious: Yes (Other)
  Sender: RANBAXY
  Company Number: US-SUN PHARMACEUTICAL INDUSTRIES INC-2025R1-515585

PATIENT
  Sex: Male

DRUGS (11)
  1. DOXORUBICIN [Suspect]
     Active Substance: DOXORUBICIN
     Indication: Diffuse large B-cell lymphoma stage III
     Route: 065
  2. PREDNISONE [Suspect]
     Active Substance: PREDNISONE
     Indication: Diffuse large B-cell lymphoma stage III
     Route: 065
  3. VINCRISTINE [Suspect]
     Active Substance: VINCRISTINE
     Indication: Diffuse large B-cell lymphoma stage III
     Route: 065
  4. AZACITIDINE [Suspect]
     Active Substance: AZACITIDINE
     Indication: Diffuse large B-cell lymphoma stage III
     Route: 065
  5. GRANULOCYTE COLONY-STIMULATING FACTOR NOS [Suspect]
     Active Substance: GRANULOCYTE COLONY-STIMULATING FACTOR NOS
     Indication: Diffuse large B-cell lymphoma stage III
     Route: 065
  6. CYCLOPHOSPHAMIDE [Suspect]
     Active Substance: CYCLOPHOSPHAMIDE
     Indication: Diffuse large B-cell lymphoma stage III
     Route: 065
  7. RITUXIMAB [Suspect]
     Active Substance: RITUXIMAB
     Indication: Diffuse large B-cell lymphoma stage III
     Route: 065
  8. OBINUTUZUMAB [Suspect]
     Active Substance: OBINUTUZUMAB
     Indication: Diffuse large B-cell lymphoma stage III
     Route: 065
  9. VENETOCLAX [Suspect]
     Active Substance: VENETOCLAX
     Indication: Diffuse large B-cell lymphoma stage III
     Route: 065
  10. BUSULFAN [Suspect]
     Active Substance: BUSULFAN
     Indication: Diffuse large B-cell lymphoma stage III
     Route: 065
  11. FLUDARABINE [Suspect]
     Active Substance: FLUDARABINE PHOSPHATE
     Indication: Diffuse large B-cell lymphoma stage III
     Route: 065

REACTIONS (10)
  - Febrile neutropenia [Recovered/Resolved]
  - Staphylococcal infection [Recovered/Resolved]
  - Sepsis [Recovered/Resolved]
  - Deep vein thrombosis [Recovered/Resolved]
  - Oesophageal candidiasis [Recovered/Resolved]
  - Bacillus infection [Recovered/Resolved]
  - Brain abscess [Recovered/Resolved]
  - Endocarditis [Recovered/Resolved]
  - Clostridium difficile colitis [Recovered/Resolved]
  - Subdural haematoma [Recovered/Resolved]
